FAERS Safety Report 5119879-3 (Version None)
Quarter: 2006Q4

REPORT INFORMATION
  Report Type: 
  Country: None (occurrence: None)
  Receive Date: 20061003
  Receipt Date: 20060920
  Transmission Date: 20070319
  Serious: Yes (Life-Threatening, Hospitalization)
  Sender: FDA-Public Use
  Company Number: ES-GILEAD-2006-0010277

PATIENT
  Age: 34 Year
  Sex: Male
  Weight: 98 kg

DRUGS (4)
  1. TRUVADA [Suspect]
     Route: 048
     Dates: start: 20060101, end: 20060516
  2. KALETRA [Suspect]
     Route: 048
     Dates: start: 20060101, end: 20060516
  3. DOCETAXEL [Suspect]
     Route: 042
     Dates: start: 20060510, end: 20060510
  4. HERCEPTIN [Suspect]
     Route: 042
     Dates: start: 20060509, end: 20060509

REACTIONS (2)
  - AGRANULOCYTOSIS [None]
  - MUCOSAL INFLAMMATION [None]
